FAERS Safety Report 13553685 (Version 1)
Quarter: 2017Q2

REPORT INFORMATION
  Report Type: Spontaneous
  Country: US (occurrence: US)
  Receive Date: 20170517
  Receipt Date: 20170517
  Transmission Date: 20170830
  Serious: Yes (Hospitalization, Other)
  Sender: FDA-Public Use
  Company Number: US-APOTEX-2017AP012158

PATIENT
  Age: 65 Year
  Sex: Female

DRUGS (1)
  1. OLANZAPINE. [Suspect]
     Active Substance: OLANZAPINE
     Indication: PRODUCT USED FOR UNKNOWN INDICATION
     Route: 065

REACTIONS (5)
  - Hypothermia [Recovered/Resolved]
  - Sinus bradycardia [Recovering/Resolving]
  - Mental impairment [Recovering/Resolving]
  - Hypoglycaemia [Recovered/Resolved]
  - Neuroglycopenia [Recovering/Resolving]
